FAERS Safety Report 6894831-6 (Version None)
Quarter: 2010Q3

REPORT INFORMATION
  Report Type: 
  Country: None (occurrence: None)
  Receive Date: 20100728
  Receipt Date: 20100722
  Transmission Date: 20110219
  Serious: Yes (Life-Threatening)
  Sender: FDA-Public Use
  Company Number: 103527

PATIENT
  Age: 6 Month
  Sex: Male

DRUGS (2)
  1. PROPRANOLOL HCL [Suspect]
     Indication: HAEMANGIOMA
     Dosage: 2MG/KG/DAY IN 3 DIVIDED DOSES
  2. PROPRANOLOL HCL [Suspect]
     Indication: HAEMANGIOMA OF LIVER
     Dosage: 2MG/KG/DAY IN 3 DIVIDED DOSES

REACTIONS (5)
  - BLOOD GLUCOSE INCREASED [None]
  - BLOOD KETONE BODY INCREASED [None]
  - CONVULSION [None]
  - HYPOGLYCAEMIA [None]
  - IRRITABILITY [None]
